FAERS Safety Report 12276090 (Version 1)
Quarter: 2016Q2

REPORT INFORMATION
  Report Type: Spontaneous
  Country: US (occurrence: US)
  Receive Date: 20160418
  Receipt Date: 20160418
  Transmission Date: 20160815
  Serious: No
  Sender: FDA-Public Use
  Company Number: US-BAYER-2016-072038

PATIENT
  Age: 69 Year
  Sex: Male
  Weight: 90.7 kg

DRUGS (4)
  1. CLARITIN [Suspect]
     Active Substance: LORATADINE
     Indication: OROPHARYNGEAL PAIN
  2. CLARITIN [Suspect]
     Active Substance: LORATADINE
     Indication: NASAL CONGESTION
  3. GAS-X [Concomitant]
     Active Substance: DIMETHICONE
  4. CLARITIN [Suspect]
     Active Substance: LORATADINE
     Indication: SEASONAL ALLERGY
     Dosage: 1 DF, QD
     Route: 048

REACTIONS (2)
  - Expired product administered [None]
  - Product use issue [None]
